FAERS Safety Report 7360740-1 (Version None)
Quarter: 2011Q1

REPORT INFORMATION
  Report Type: 
  Country: None (occurrence: None)
  Receive Date: 20110318
  Receipt Date: 20110307
  Transmission Date: 20110831
  Serious: Yes (Other)
  Sender: FDA-Public Use
  Company Number: SE-SANOFI-AVENTIS-2011SA013948

PATIENT
  Age: 66 Year
  Sex: Male

DRUGS (9)
  1. OXALIPLATIN [Suspect]
     Route: 042
     Dates: start: 20110216, end: 20110216
  2. AMLODIPINE [Concomitant]
  3. ALPHAGAN [Concomitant]
  4. OXALIPLATIN [Suspect]
     Route: 042
     Dates: start: 20090921, end: 20090921
  5. TIMOSAN [Concomitant]
  6. XALATAN [Concomitant]
  7. ATENOLOL [Concomitant]
  8. XELODA [Suspect]
     Route: 048
     Dates: start: 20090921, end: 20100216
  9. SIMVASTATIN [Concomitant]

REACTIONS (5)
  - LACRIMATION INCREASED [None]
  - RHINORRHOEA [None]
  - GLAUCOMA [None]
  - CONDITION AGGRAVATED [None]
  - BLINDNESS [None]
